FAERS Safety Report 14093294 (Version 1)
Quarter: 2017Q4

REPORT INFORMATION
  Report Type: Spontaneous
  Country: US (occurrence: US)
  Receive Date: 20171016
  Receipt Date: 20171016
  Transmission Date: 20180321
  Serious: No
  Sender: FDA-Public Use
  Company Number: US-SHIRE-US201719965

PATIENT

DRUGS (1)
  1. XIIDRA [Suspect]
     Active Substance: LIFITEGRAST
     Indication: PRODUCT USED FOR UNKNOWN INDICATION
     Route: 047

REACTIONS (8)
  - Drug ineffective [Unknown]
  - Skin irritation [Unknown]
  - Skin burning sensation [Unknown]
  - Malaise [Unknown]
  - Vision blurred [Unknown]
  - Pruritus [Unknown]
  - Discomfort [Unknown]
  - Headache [Unknown]
